FAERS Safety Report 9220598 (Version 1)
Quarter: 2013Q2

REPORT INFORMATION
  Report Type: Spontaneous
  Country: US (occurrence: US)
  Receive Date: 20130409
  Receipt Date: 20130409
  Transmission Date: 20140414
  Serious: No
  Sender: FDA-Public Use
  Company Number: US-ASTRAZENECA-2013SE20469

PATIENT
  Age: 69 Year
  Sex: Female
  Weight: 86.6 kg

DRUGS (24)
  1. NEXIUM [Suspect]
     Indication: GASTROOESOPHAGEAL REFLUX DISEASE
     Dosage: DAILY
     Route: 048
  2. NEXIUM [Suspect]
     Indication: HIATUS HERNIA
     Dosage: DAILY
     Route: 048
  3. NEXIUM [Suspect]
     Indication: GASTROOESOPHAGEAL REFLUX DISEASE
     Dosage: TWO TIME A DAY
     Route: 048
     Dates: start: 20130325
  4. NEXIUM [Suspect]
     Indication: HIATUS HERNIA
     Dosage: TWO TIME A DAY
     Route: 048
     Dates: start: 20130325
  5. LISINOPRIL [Suspect]
     Route: 048
  6. LISINOPRIL [Suspect]
     Route: 048
  7. METOPROLOL [Suspect]
     Route: 048
  8. ASPIRIN [Concomitant]
     Indication: CARDIOVASCULAR EVENT PROPHYLAXIS
  9. LEVOTHYROXIN [Concomitant]
     Indication: THYROID DISORDER
  10. PRAVASTATIN [Concomitant]
  11. GABAPENTIN [Concomitant]
     Indication: NEUROPATHY PERIPHERAL
  12. OXYBUTYNIN [Concomitant]
     Indication: BLADDER DISORDER
  13. MORPHINE [Concomitant]
     Indication: ARTHRITIS
  14. FENOFIBRATE [Concomitant]
     Indication: BLOOD CHOLESTEROL ABNORMAL
  15. LANTUS INSULIN [Concomitant]
     Indication: DIABETES MELLITUS
  16. NOVOLOG INSULIN [Concomitant]
     Indication: DIABETES MELLITUS
     Dosage: TID
  17. CETIRIZINE [Concomitant]
     Indication: MULTIPLE ALLERGIES
  18. CETIRIZINE [Concomitant]
     Indication: ALLERGY TO VACCINE
  19. VITAMINS [Concomitant]
     Dosage: DAILY
  20. CINNAMON [Concomitant]
     Dosage: DAILY
  21. GARLIC [Concomitant]
     Indication: BLOOD CHOLESTEROL ABNORMAL
  22. IRON [Concomitant]
  23. FISH OIL [Concomitant]
  24. VITAMIN D3 [Concomitant]

REACTIONS (7)
  - Nephrolithiasis [Unknown]
  - Hypophagia [Recovering/Resolving]
  - Kidney infection [Unknown]
  - Nervousness [Unknown]
  - Arthritis [Not Recovered/Not Resolved]
  - Renal impairment [Unknown]
  - Intentional drug misuse [Unknown]
